FAERS Safety Report 13435699 (Version 1)
Quarter: 2017Q2

REPORT INFORMATION
  Report Type: Spontaneous
  Country: US (occurrence: US)
  Receive Date: 20170412
  Receipt Date: 20170412
  Transmission Date: 20170830
  Serious: No
  Sender: FDA-Public Use
  Company Number: US-SA-2016SA106715

PATIENT
  Age: 85 Year
  Sex: Female

DRUGS (1)
  1. ALLEGRA ALLERGY [Suspect]
     Active Substance: FEXOFENADINE HYDROCHLORIDE
     Indication: SNEEZING
     Dosage: ONLY USED TWICE TILL THE TIME OF REPORTING.
     Route: 065
     Dates: start: 20160529

REACTIONS (5)
  - Fatigue [Unknown]
  - Somnolence [Unknown]
  - Mobility decreased [Unknown]
  - Asthenia [Unknown]
  - Feeling abnormal [Unknown]
